FAERS Safety Report 9461366 (Version 1)
Quarter: 2013Q3

REPORT INFORMATION
  Report Type: Report from Study
  Country: JP (occurrence: JP)
  Receive Date: 20130816
  Receipt Date: 20130816
  Transmission Date: 20140515
  Serious: Yes (Hospitalization)
  Sender: FDA-Public Use
  Company Number: JP-GENZYME-THYM-1003985

PATIENT
  Age: 22 Year
  Sex: Male
  Weight: 79 kg

DRUGS (1)
  1. THYMOGLOBULIN [Suspect]
     Indication: APLASTIC ANAEMIA
     Dosage: 275 MG, QD
     Route: 065
     Dates: start: 20100901, end: 20100906

REACTIONS (1)
  - Febrile neutropenia [Recovered/Resolved]
